FAERS Safety Report 14145496 (Version 4)
Quarter: 2017Q4

REPORT INFORMATION
  Report Type: Report from Study
  Country: MX (occurrence: MX)
  Receive Date: 20171031
  Receipt Date: 20171212
  Transmission Date: 20180321
  Serious: Yes (Death, Other)
  Sender: FDA-Public Use
  Company Number: PHHY2017MX160131

PATIENT
  Age: 75 Year
  Sex: Male
  Weight: 80 kg

DRUGS (7)
  1. METFORMIN [Suspect]
     Active Substance: METFORMIN HYDROCHLORIDE
     Indication: PRODUCT USED FOR UNKNOWN INDICATION
     Dosage: 850 MG, QD
     Route: 048
     Dates: start: 2000
  2. STALEVO [Suspect]
     Active Substance: CARBIDOPA\ENTACAPONE\LEVODOPA
     Indication: PARKINSON^S DISEASE
     Dosage: 2 DF (CARBIDOPA 37.5 MG, ENTACAPONE 200 MG, LEVODOPA 150 MG), QD
     Route: 065
     Dates: start: 2002, end: 201701
  3. PIRENZEPINE HCL [Concomitant]
     Indication: PRODUCT USED FOR UNKNOWN INDICATION
     Route: 065
  4. LERCANIDIPINE [Concomitant]
     Active Substance: LERCANIDIPINE
     Indication: HYPERTENSION
     Dosage: 10 MG, QD
     Route: 048
     Dates: start: 2009
  5. AZILECT [Concomitant]
     Active Substance: RASAGILINE MESYLATE
     Indication: PARKINSON^S DISEASE
     Dosage: 1 DF, QD
     Route: 048
     Dates: start: 2016
  6. STALEVO [Suspect]
     Active Substance: CARBIDOPA\ENTACAPONE\LEVODOPA
     Dosage: 2 DF (CARBIDOPA 37.5 MG, ENTACAPONE 200 MG, LEVODOPA 150 MG), QD
     Route: 065
  7. AMANTADINE. [Concomitant]
     Active Substance: AMANTADINE HYDROCHLORIDE
     Indication: PARKINSON^S DISEASE
     Dosage: 1 DF, Q12H
     Route: 048
     Dates: start: 2002

REACTIONS (6)
  - Infarction [Fatal]
  - Malaise [Fatal]
  - Hypertension [Unknown]
  - Musculoskeletal chest pain [Unknown]
  - Parkinson^s disease [Unknown]
  - Constipation [Unknown]

NARRATIVE: CASE EVENT DATE: 20170617
